FAERS Safety Report 8924868 (Version 1)
Quarter: 2012Q4

REPORT INFORMATION
  Report Type: 
  Country: US (occurrence: US)
  Receive Date: 20121126
  Receipt Date: 20121126
  Transmission Date: 20130627
  Serious: Yes (Hospitalization)
  Sender: FDA-Public Use
  Company Number: US-PFIZER INC-2012295003

PATIENT
  Age: 79 Year
  Sex: Male
  Weight: 93 kg

DRUGS (1)
  1. ATORVASTATIN CALCIUM [Suspect]
     Indication: HIGH CHOLESTEROL
     Dosage: 40 mg, daily

REACTIONS (4)
  - Urinary bladder haemorrhage [Unknown]
  - Blood urine present [Not Recovered/Not Resolved]
  - Product contamination physical [Unknown]
  - Drug ineffective [Unknown]
